FAERS Safety Report 10201917 (Version 2)
Quarter: 2014Q2

REPORT INFORMATION
  Report Type: Spontaneous
  Country: US (occurrence: US)
  Receive Date: 20140528
  Receipt Date: 20140619
  Transmission Date: 20141212
  Serious: Yes (Death, Hospitalization)
  Sender: FDA-Public Use
  Company Number: US-ACTELION-A-US2014-99139

PATIENT
  Age: 75 Year
  Sex: Female

DRUGS (3)
  1. OPSUMIT [Suspect]
     Indication: PULMONARY ARTERIAL HYPERTENSION
     Dosage: 10 MG, UNK
     Route: 048
     Dates: start: 201404
  2. FLOLAN [Concomitant]
  3. LASIX [Concomitant]

REACTIONS (9)
  - Pulmonary arterial hypertension [Fatal]
  - Condition aggravated [Fatal]
  - Right ventricular failure [Fatal]
  - Pulmonary oedema [Fatal]
  - Hypertension [Unknown]
  - Cellulitis [Unknown]
  - Sepsis [Unknown]
  - Atrial fibrillation [Unknown]
  - Catheterisation cardiac [Unknown]
